FAERS Safety Report 12632390 (Version 2)
Quarter: 2016Q3

REPORT INFORMATION
  Report Type: Spontaneous
  Country: US (occurrence: US)
  Receive Date: 20160808
  Receipt Date: 20160808
  Transmission Date: 20161109
  Serious: No
  Sender: FDA-Public Use
  Company Number: US-BEH-2016062696

PATIENT
  Sex: Female
  Weight: 134 kg

DRUGS (33)
  1. ACETAMINOPHEN. [Concomitant]
     Active Substance: ACETAMINOPHEN
  2. CYMBALTA [Concomitant]
     Active Substance: DULOXETINE HYDROCHLORIDE
  3. CLOZAPINE. [Concomitant]
     Active Substance: CLOZAPINE
  4. PROVENTIL [Concomitant]
     Active Substance: ALBUTEROL
  5. CLONAZEPAM. [Concomitant]
     Active Substance: CLONAZEPAM
  6. SYMBICORT [Concomitant]
     Active Substance: BUDESONIDE\FORMOTEROL FUMARATE DIHYDRATE
  7. COMPLETE MULTIVITAMIN [Concomitant]
     Active Substance: VITAMINS
  8. HIZENTRA [Suspect]
     Active Substance: HUMAN IMMUNOGLOBULIN G
     Route: 058
  9. VITAMIN D [Concomitant]
     Active Substance: CHOLECALCIFEROL
  10. SYNTHROID [Concomitant]
     Active Substance: LEVOTHYROXINE SODIUM
  11. OCEAN SALINE NASAL SPRAY [Concomitant]
     Active Substance: SODIUM CHLORIDE
  12. MIRALAX [Concomitant]
     Active Substance: POLYETHYLENE GLYCOL 3350
  13. CALCIUM+ VITAMIN D [Concomitant]
  14. FOLIC ACID. [Concomitant]
     Active Substance: FOLIC ACID
  15. GAS-X [Concomitant]
     Active Substance: DIMETHICONE
  16. AVAPRO [Concomitant]
     Active Substance: IRBESARTAN
  17. HIZENTRA [Suspect]
     Active Substance: HUMAN IMMUNOGLOBULIN G
     Indication: ACQUIRED IMMUNODEFICIENCY SYNDROME
     Route: 058
  18. HIZENTRA [Suspect]
     Active Substance: HUMAN IMMUNOGLOBULIN G
     Route: 058
  19. DIPHENHYDRAMINE. [Concomitant]
     Active Substance: DIPHENHYDRAMINE
  20. ZOFRAN [Concomitant]
     Active Substance: ONDANSETRON HYDROCHLORIDE
  21. PROTONIX [Concomitant]
     Active Substance: PANTOPRAZOLE SODIUM
  22. VERELAN [Concomitant]
     Active Substance: VERAPAMIL HYDROCHLORIDE
  23. HIZENTRA [Suspect]
     Active Substance: HUMAN IMMUNOGLOBULIN G
     Route: 058
  24. ALSUMA [Concomitant]
     Active Substance: SUMATRIPTAN SUCCINATE
  25. BACTRIM [Concomitant]
     Active Substance: SULFAMETHOXAZOLE\TRIMETHOPRIM
  26. LIDOCAINE. [Concomitant]
     Active Substance: LIDOCAINE
  27. PENICILLIN G [Concomitant]
     Active Substance: PENICILLIN G
  28. FLEXERIL [Concomitant]
     Active Substance: CYCLOBENZAPRINE HYDROCHLORIDE
  29. NORCO [Concomitant]
     Active Substance: ACETAMINOPHEN\HYDROCODONE BITARTRATE
  30. IMITREX [Concomitant]
     Active Substance: SUMATRIPTAN SUCCINATE
  31. EPIPEN [Concomitant]
     Active Substance: EPINEPHRINE
  32. LEVAQUIN [Concomitant]
     Active Substance: LEVOFLOXACIN
  33. NYSTATIN. [Concomitant]
     Active Substance: NYSTATIN

REACTIONS (2)
  - Influenza [Unknown]
  - Gastroenteritis viral [Unknown]
